FAERS Safety Report 14318087 (Version 3)
Quarter: 2018Q1

REPORT INFORMATION
  Report Type: Report from Study
  Country: DE (occurrence: DE)
  Receive Date: 20171222
  Receipt Date: 20180130
  Transmission Date: 20180509
  Serious: Yes (Hospitalization)
  Sender: FDA-Public Use
  Company Number: DE-ASTELLAS-2017US054193

PATIENT
  Age: 44 Year
  Sex: Male

DRUGS (1)
  1. TACROLIMUS. [Suspect]
     Active Substance: TACROLIMUS
     Indication: RENAL TRANSPLANT
     Dosage: 13 MG, ONCE DAILY(1-0-0)
     Route: 065
     Dates: start: 20171006

REACTIONS (1)
  - Histology abnormal [Recovered/Resolved with Sequelae]

NARRATIVE: CASE EVENT DATE: 20171205
